FAERS Safety Report 8844841 (Version 2)
Quarter: 2012Q4

REPORT INFORMATION
  Report Type: 
  Country: US (occurrence: US)
  Receive Date: 20121017
  Receipt Date: 20121203
  Transmission Date: 20130627
  Serious: No
  Sender: FDA-Public Use
  Company Number: US-PFIZER INC-2012253549

PATIENT
  Sex: Female

DRUGS (1)
  1. MISOPROSTOL [Suspect]
     Indication: ABORTION
     Dosage: 800 mcg (four tablets of 200 mcg)
     Route: 048
     Dates: start: 201210

REACTIONS (1)
  - Drug ineffective for unapproved indication [Unknown]
